FAERS Safety Report 7075724-0 (Version None)
Quarter: 2010Q4

REPORT INFORMATION
  Report Type: 
  Country: None (occurrence: None)
  Receive Date: 20101101
  Receipt Date: 20101018
  Transmission Date: 20110411
  Serious: Yes (Congenital Anomaly)
  Sender: FDA-Public Use
  Company Number: US-BIOGENIDEC-2010BI033628

PATIENT
  Age: 0 Day
  Sex: Male
  Weight: 4 kg

DRUGS (1)
  1. TYSABRI [Suspect]
     Indication: DRUG EXPOSURE DURING PREGNANCY
     Route: 064
     Dates: start: 20080319, end: 20090803

REACTIONS (1)
  - TRACHEOMALACIA [None]
